FAERS Safety Report 7773047-5 (Version None)
Quarter: 2011Q3

REPORT INFORMATION
  Report Type: 
  Country: None (occurrence: None)
  Receive Date: 20110922
  Receipt Date: 20101214
  Transmission Date: 20111222
  Serious: No
  Sender: FDA-Public Use
  Company Number: US-ASTRAZENECA-2010SE59234

PATIENT
  Age: 722 Month
  Sex: Female
  Weight: 81.6 kg

DRUGS (12)
  1. SEROQUEL XR [Interacting]
     Indication: BIPOLAR II DISORDER
     Route: 048
     Dates: start: 20101101, end: 20101101
  2. SEROQUEL XR [Interacting]
     Route: 048
     Dates: start: 20101201, end: 20101201
  3. SEROQUEL XR [Interacting]
     Route: 048
     Dates: start: 20101201, end: 20101205
  4. OVER THE COUNTER SLEEP MEDICATION [Concomitant]
     Indication: SLEEP DISORDER
  5. SEROQUEL XR [Interacting]
     Route: 048
     Dates: start: 20101201, end: 20101201
  6. CLONAZEPAM [Interacting]
     Route: 065
  7. LORAZEPAM [Concomitant]
     Indication: SLEEP DISORDER
  8. SEROQUEL XR [Interacting]
     Route: 048
     Dates: start: 20101201, end: 20101205
  9. SEROQUEL XR [Interacting]
     Route: 048
     Dates: start: 20101201, end: 20101205
  10. SEROQUEL XR [Interacting]
     Indication: DEPRESSION
     Route: 048
     Dates: start: 20101101, end: 20101101
  11. SEROQUEL XR [Interacting]
     Route: 048
     Dates: start: 20101201, end: 20101201
  12. SEROQUEL XR [Suspect]
     Indication: SEASONAL AFFECTIVE DISORDER
     Route: 048
     Dates: start: 20101101, end: 20101101

REACTIONS (8)
  - DRUG INTERACTION [None]
  - CONSTIPATION [None]
  - WRONG TECHNIQUE IN DRUG USAGE PROCESS [None]
  - PAIN [None]
  - WEIGHT INCREASED [None]
  - MYALGIA [None]
  - PSYCHOMOTOR HYPERACTIVITY [None]
  - AGGRESSION [None]
